FAERS Safety Report 7637689-X (Version None)
Quarter: 2011Q3

REPORT INFORMATION
  Report Type: 
  Country: None (occurrence: None)
  Receive Date: 20110726
  Receipt Date: 20110716
  Transmission Date: 20111222
  Serious: Yes (Other)
  Sender: FDA-Public Use
  Company Number: US-AMGEN-USASP2011035903

PATIENT
  Sex: Female

DRUGS (1)
  1. ENBREL [Suspect]
     Indication: RHEUMATOID ARTHRITIS
     Dosage: 50 MG, QWK
     Dates: start: 20050615

REACTIONS (6)
  - PAIN IN EXTREMITY [None]
  - INJECTION SITE HAEMATOMA [None]
  - CHRONIC SINUSITIS [None]
  - AMNESIA [None]
  - BACK PAIN [None]
  - INJECTION SITE PRURITUS [None]
